FAERS Safety Report 9928160 (Version 1)
Quarter: 2014Q1

REPORT INFORMATION
  Report Type: Spontaneous
  Country: US (occurrence: None)
  Receive Date: 20140224
  Receipt Date: 20140224
  Transmission Date: 20141002
  Serious: No
  Sender: FDA-Public Use
  Company Number: NL01PV14.35203

PATIENT
  Age: 21 Year
  Sex: Female

DRUGS (2)
  1. ZOLPIDEM TABLETS [Suspect]
     Route: 048
  2. ZIPRASIDONE [Suspect]
     Route: 048

REACTIONS (3)
  - Respiratory arrest [None]
  - Cardiac arrest [None]
  - Exposure via ingestion [None]
